FAERS Safety Report 4970068-2 (Version None)
Quarter: 2006Q2

REPORT INFORMATION
  Report Type: 
  Country: None (occurrence: None)
  Receive Date: 20060406
  Receipt Date: 20060321
  Transmission Date: 20061013
  Serious: Yes (Other)
  Sender: FDA-Public Use
  Company Number: 200610051BCC

PATIENT
  Age: 39 Year
  Sex: Male
  Weight: 69.4003 kg

DRUGS (3)
  1. ALEVE [Suspect]
     Indication: ARTHRALGIA
     Dosage: 220 MG, BID, ORAL
     Route: 048
     Dates: start: 20020415, end: 20020420
  2. ALEVE [Suspect]
     Indication: ARTHRITIS
     Dosage: 220 MG, BID, ORAL
     Route: 048
     Dates: start: 20020415, end: 20020420
  3. ALEVE [Suspect]
     Indication: JOINT INJURY
     Dosage: 220 MG, BID, ORAL
     Route: 048
     Dates: start: 20020415, end: 20020420

REACTIONS (6)
  - ARTHRITIS [None]
  - ASCITES [None]
  - BODY FAT DISORDER [None]
  - DRUG HYPERSENSITIVITY [None]
  - GENERALISED OEDEMA [None]
  - PERITONEAL EFFUSION [None]
